FAERS Safety Report 9560057 (Version 2)
Quarter: 2013Q4

REPORT INFORMATION
  Report Type: Spontaneous
  Country: US (occurrence: US)
  Receive Date: 20130927
  Receipt Date: 20131002
  Transmission Date: 20140711
  Serious: No
  Sender: FDA-Public Use
  Company Number: US-PFIZER INC-2013274169

PATIENT
  Sex: Female

DRUGS (1)
  1. METHOTREXATE SODIUM [Suspect]
     Dosage: 50MG/2ML
     Route: 058
     Dates: start: 2012

REACTIONS (3)
  - Incorrect route of drug administration [Unknown]
  - Wrong technique in drug usage process [Unknown]
  - Injection site pain [Unknown]
